FAERS Safety Report 8249259-3 (Version None)
Quarter: 2012Q2

REPORT INFORMATION
  Report Type: 
  Country: None (occurrence: None)
  Receive Date: 20120402
  Receipt Date: 20120326
  Transmission Date: 20120825
  Serious: Yes (Hospitalization)
  Sender: FDA-Public Use
  Company Number: IE-US-EMD SERONO, INC.-7122129

PATIENT
  Sex: Male

DRUGS (2)
  1. LYRICA [Concomitant]
     Indication: NEURALGIA
  2. REBIF [Suspect]
     Indication: RELAPSING-REMITTING MULTIPLE SCLEROSIS
     Route: 058
     Dates: start: 20111202

REACTIONS (1)
  - BALANCE DISORDER [None]
